FAERS Safety Report 8388646-X (Version None)
Quarter: 2012Q2

REPORT INFORMATION
  Report Type: 
  Country: None (occurrence: None)
  Receive Date: 20120525
  Receipt Date: 20120517
  Transmission Date: 20120825
  Serious: Yes (Hospitalization, Disabling, Other)
  Sender: FDA-Public Use
  Company Number: US-MERCK-1203USA03375

PATIENT
  Age: 81 Year
  Sex: Female

DRUGS (8)
  1. FOSAMAX [Suspect]
     Indication: OSTEOPOROSIS
     Route: 048
     Dates: start: 20060329
  2. FOSAMAX [Suspect]
     Route: 048
     Dates: start: 20090101
  3. ALENDRONATE SODIUM [Suspect]
     Indication: OSTEOPOROSIS
     Route: 048
     Dates: start: 20090103
  4. MULTI-VITAMINS [Concomitant]
     Route: 065
     Dates: start: 19990101, end: 20090101
  5. VITAMIN D (UNSPECIFIED) [Concomitant]
     Route: 065
     Dates: start: 19990101, end: 20090101
  6. FOSAMAX [Suspect]
     Route: 048
     Dates: start: 20090101
  7. FOSAMAX [Suspect]
     Indication: OSTEOPENIA
     Route: 048
     Dates: start: 20060329
  8. MINERALS (UNSPECIFIED) [Concomitant]
     Route: 065
     Dates: start: 19990101, end: 20090101

REACTIONS (30)
  - FEMUR FRACTURE [None]
  - GASTRITIS [None]
  - HYPOXIA [None]
  - TACHYCARDIA [None]
  - DRUG HYPERSENSITIVITY [None]
  - ASTHMA [None]
  - FLUID RETENTION [None]
  - RENAL FAILURE [None]
  - HYPOTENSION [None]
  - THROMBOCYTOPENIA [None]
  - VENOUS INSUFFICIENCY [None]
  - CELLULITIS [None]
  - CHEST PAIN [None]
  - CHRONIC OBSTRUCTIVE PULMONARY DISEASE [None]
  - LOW TURNOVER OSTEOPATHY [None]
  - HYPERLIPIDAEMIA [None]
  - ANAEMIA POSTOPERATIVE [None]
  - OEDEMA PERIPHERAL [None]
  - DECUBITUS ULCER [None]
  - HYPOGLYCAEMIA [None]
  - URINARY RETENTION [None]
  - IMPAIRED HEALING [None]
  - DIABETES MELLITUS INADEQUATE CONTROL [None]
  - BACK DISORDER [None]
  - PNEUMONIA STAPHYLOCOCCAL [None]
  - WOUND INFECTION STAPHYLOCOCCAL [None]
  - CHONDROCALCINOSIS [None]
  - HEART VALVE INCOMPETENCE [None]
  - DEPRESSION [None]
  - HYPERTENSION [None]
